FAERS Safety Report 16244083 (Version 10)
Quarter: 2022Q2

REPORT INFORMATION
  Report Type: Spontaneous
  Country: US (occurrence: US)
  Receive Date: 20190426
  Receipt Date: 20220422
  Transmission Date: 20220721
  Serious: No
  Sender: FDA-Public Use
  Company Number: US-PFIZER INC-2019173237

PATIENT
  Age: 78 Year
  Sex: Male
  Weight: 95.71 kg

DRUGS (3)
  1. BOSULIF [Suspect]
     Active Substance: BOSUTINIB MONOHYDRATE
     Indication: Chronic myeloid leukaemia
     Dosage: 500 MG, 1X/DAY
     Route: 048
     Dates: start: 201903
  2. BOSULIF [Suspect]
     Active Substance: BOSUTINIB MONOHYDRATE
     Indication: Prostatitis
     Dosage: 600 MG, DAILY (1 P.O.(PER ORAL) DAILY [100 MG] IN COMBINATION WITH 500MG TO MAKE TOTAL 600MG/DAY)
     Route: 048
  3. BOSULIF [Suspect]
     Active Substance: BOSUTINIB MONOHYDRATE
     Dosage: 400 MG

REACTIONS (13)
  - Neoplasm progression [Recovered/Resolved]
  - Accidental overdose [Unknown]
  - Nasopharyngitis [Recovered/Resolved]
  - Fatigue [Recovered/Resolved]
  - Productive cough [Recovered/Resolved]
  - Asthenia [Recovered/Resolved]
  - White blood cell count decreased [Recovered/Resolved]
  - Weight decreased [Unknown]
  - Cerebrovascular disorder [Unknown]
  - Mental disorder [Unknown]
  - Somnolence [Unknown]
  - Full blood count abnormal [Unknown]
  - Tooth abscess [Unknown]

NARRATIVE: CASE EVENT DATE: 20191101
